FAERS Safety Report 8967946 (Version 1)
Quarter: 2012Q4

REPORT INFORMATION
  Report Type: 
  Country: US (occurrence: US)
  Receive Date: 20121218
  Receipt Date: 20121218
  Transmission Date: 20130627
  Serious: No
  Sender: FDA-Public Use
  Company Number: US-009507513-1212USA006210

PATIENT
  Age: 60 Year
  Sex: Female

DRUGS (4)
  1. EMEND [Suspect]
     Indication: CHEMOTHERAPY
     Dosage: 800mg/days 2 and 3 after the 125mg prior to chemotherapy
  2. DEXAMETHASONE [Concomitant]
  3. TAXOTERE [Concomitant]
  4. BENADRYL [Concomitant]

REACTIONS (3)
  - Erythema [Unknown]
  - Urticaria [Unknown]
  - Pruritus [Unknown]
